FAERS Safety Report 6768820-6 (Version None)
Quarter: 2010Q2

REPORT INFORMATION
  Report Type: 
  Country: None (occurrence: None)
  Receive Date: 20100611
  Receipt Date: 20100601
  Transmission Date: 20101027
  Serious: Yes (Death)
  Sender: FDA-Public Use
  Company Number: 1000013801

PATIENT
  Age: 90 Year
  Sex: Female

DRUGS (6)
  1. CITALOPRAM HYDROBROMIDE [Suspect]
     Indication: DEPRESSION
     Dosage: 10 MG (10 MG, 1 IN 1 D), ORAL
     Route: 048
  2. TROMBYL (TABLETS) [Suspect]
     Indication: PROPHYLAXIS
     Dosage: 75 MG (75 (MG, 1 IN 1 D), ORAL
     Route: 048
  3. TRAVATAN [Concomitant]
  4. STILNOCT [Concomitant]
  5. FOTIL [Concomitant]
  6. KALCIPOS [Concomitant]

REACTIONS (5)
  - NO THERAPEUTIC RESPONSE [None]
  - PLATELET COUNT DECREASED [None]
  - POST PROCEDURAL HAEMORRHAGE [None]
  - PROCEDURAL COMPLICATION [None]
  - SHOCK HAEMORRHAGIC [None]
